FAERS Safety Report 6185667-2 (Version None)
Quarter: 2009Q2

REPORT INFORMATION
  Report Type: 
  Country: None (occurrence: None)
  Receive Date: 20090511
  Receipt Date: 20090428
  Transmission Date: 20091009
  Serious: Yes (Hospitalization)
  Sender: FDA-Public Use
  Company Number: PHHY2009FR16591

PATIENT
  Age: 30 Year
  Sex: Female

DRUGS (1)
  1. COARTEM [Suspect]
     Indication: MALARIA
     Dosage: 4 TABLETS AT HOUR 0, 8, 24, 36, 48 AND 60
     Route: 048
     Dates: start: 20090118, end: 20090121

REACTIONS (3)
  - ANAEMIA HAEMOLYTIC AUTOIMMUNE [None]
  - ASTHENIA [None]
  - BACK PAIN [None]
